FAERS Safety Report 18937196 (Version 1)
Quarter: 2021Q1

REPORT INFORMATION
  Report Type: Spontaneous
  Country: IT (occurrence: IT)
  Receive Date: 20210225
  Receipt Date: 20210225
  Transmission Date: 20210420
  Serious: Yes (Other)
  Sender: FDA-Public Use
  Company Number: IT-AUROBINDO-AUR-APL-2021-007730

PATIENT
  Age: 39 Year
  Sex: Female

DRUGS (3)
  1. CETIRIZINE [Suspect]
     Active Substance: CETIRIZINE HYDROCHLORIDE
     Indication: CHRONIC SPONTANEOUS URTICARIA
     Dosage: 10 MILLIGRAM, FOUR TIMES/DAY
     Route: 065
  2. PREDNISONE. [Concomitant]
     Active Substance: PREDNISONE
     Indication: CHRONIC SPONTANEOUS URTICARIA
     Dosage: 25 MILLIGRAM, ONCE A DAY
     Route: 048
  3. CYCLOSPORINE. [Concomitant]
     Active Substance: CYCLOSPORINE
     Indication: CHRONIC SPONTANEOUS URTICARIA
     Dosage: 3 MILLIGRAMS/KILOGRAMS/DAY
     Route: 048

REACTIONS (3)
  - Urticaria [Recovered/Resolved]
  - Off label use [Unknown]
  - Overdose [Unknown]
